FAERS Safety Report 5164832-7 (Version None)
Quarter: 2006Q4

REPORT INFORMATION
  Report Type: 
  Country: None (occurrence: None)
  Receive Date: 20061124
  Receipt Date: 20061109
  Transmission Date: 20070319
  Serious: Yes (Other)
  Sender: FDA-Public Use
  Company Number: 149914ISR

PATIENT
  Age: 64 Year
  Sex: Female

DRUGS (1)
  1. METRONIDAZOLE [Suspect]
     Indication: TOOTH DISORDER
     Dosage: (400 MG) ORAL
     Route: 048

REACTIONS (1)
  - VITREOUS DETACHMENT [None]
